FAERS Safety Report 6541446-5 (Version None)
Quarter: 2010Q1

REPORT INFORMATION
  Report Type: 
  Country: None (occurrence: None)
  Receive Date: 20100118
  Receipt Date: 20070808
  Transmission Date: 20100710
  Serious: Yes (Other)
  Sender: FDA-Public Use
  Company Number: PHHY2007BR01345

PATIENT
  Age: 80 Year
  Sex: Female
  Weight: 69 kg

DRUGS (16)
  1. PREXIGE [Suspect]
     Indication: NEURALGIA
     Dosage: 1 TABLET DAILY
     Route: 048
     Dates: start: 20070801
  2. PAMELOR [Suspect]
     Dosage: 1 TABLET
     Route: 048
     Dates: start: 20070803
  3. LIORESAL [Suspect]
     Indication: HYPOTONIA
     Dosage: 1 TABLET DAILY
     Route: 048
     Dates: start: 20070803
  4. FORASEQ [Suspect]
     Indication: ASTHMA
     Dosage: 12/400, 2 INHALATION DAILY
     Dates: start: 20060101
  5. AEROFLUX [Concomitant]
     Indication: ASTHMA
     Dosage: 5 ML DAILY
     Route: 048
     Dates: start: 20070807
  6. AEROFLUX [Concomitant]
     Indication: DYSPNOEA
  7. RIVOTRIL [Concomitant]
     Indication: LABYRINTHITIS
     Dosage: HALF TABLET ON MORNING AND 1 TABLET AT NIGHT
     Route: 048
  8. DAFLON [Concomitant]
     Indication: ULCER
     Dosage: 1 TABLET DAILY WHEN NECESSARY
     Route: 048
  9. INDAPEN [Concomitant]
     Indication: HYPERTENSION
     Dosage: UNK
     Dates: start: 20070601
  10. BETAHISTINE HYDROCHLORIDE [Concomitant]
     Indication: LABYRINTHITIS
     Dosage: 1 TABLET DAILY
     Route: 048
  11. PAROXETINE HYDROCHLORIDE [Concomitant]
     Indication: DEPRESSION
     Dosage: UNK
     Dates: start: 20060101
  12. SIMVASTATIN [Concomitant]
     Indication: BLOOD CHOLESTEROL INCREASED
     Dosage: 1 TABLET DAILY
     Route: 048
  13. PROTOS (STRONTIUM RANELATE) [Concomitant]
     Indication: THYROID DISORDER
     Dosage: 1 SACHET DAILY
     Route: 048
     Dates: start: 20070401
  14. PURAN T4 [Concomitant]
     Indication: THYROID DISORDER
     Dosage: 1 TABLET DAILY ON FASTING
     Route: 048
  15. OMEPRAZOLE [Concomitant]
     Dosage: 1 TABLET ON FASTING
     Route: 048
  16. AROTINOLOL HYDROCHLORIDE [Concomitant]
     Indication: DEPRESSION

REACTIONS (2)
  - OEDEMA PERIPHERAL [None]
  - SWELLING FACE [None]
